FAERS Safety Report 11755545 (Version 2)
Quarter: 2016Q1

REPORT INFORMATION
  Report Type: Spontaneous
  Country: US (occurrence: US)
  Receive Date: 20151119
  Receipt Date: 20160112
  Transmission Date: 20160525
  Serious: No
  Sender: FDA-Public Use
  Company Number: US-PFIZER INC-2015391611

PATIENT
  Age: 11 Year
  Sex: Male
  Weight: 61.23 kg

DRUGS (4)
  1. QUILLIVANT XR [Suspect]
     Active Substance: METHYLPHENIDATE HYDROCHLORIDE
     Indication: ATTENTION DEFICIT/HYPERACTIVITY DISORDER
     Dosage: 5 ML, UNK
  2. QUILLIVANT XR [Suspect]
     Active Substance: METHYLPHENIDATE HYDROCHLORIDE
     Dosage: 7.5 ML, UNK
     Dates: start: 2015, end: 2015
  3. QUILLIVANT XR [Suspect]
     Active Substance: METHYLPHENIDATE HYDROCHLORIDE
     Dosage: 7 ML, UNK
     Dates: start: 20151028, end: 2015
  4. QUILLIVANT XR [Suspect]
     Active Substance: METHYLPHENIDATE HYDROCHLORIDE
     Dosage: 10 ML, UNK
     Dates: start: 20151113

REACTIONS (1)
  - Drug effect incomplete [Unknown]
